FAERS Safety Report 6568490-6 (Version None)
Quarter: 2010Q1

REPORT INFORMATION
  Report Type: 
  Country: None (occurrence: None)
  Receive Date: 20100203
  Receipt Date: 20100127
  Transmission Date: 20100710
  Serious: Yes (Life-Threatening)
  Sender: FDA-Public Use
  Company Number: B0629356A

PATIENT
  Sex: Male
  Weight: 52 kg

DRUGS (2)
  1. AUGMENTIN '125' [Suspect]
     Route: 042
     Dates: start: 20090317, end: 20090317
  2. ATARAX [Concomitant]
     Dosage: 100MG SINGLE DOSE
     Route: 048
     Dates: start: 20090317, end: 20090317

REACTIONS (9)
  - BLOOD BICARBONATE DECREASED [None]
  - CONJUNCTIVAL HYPERAEMIA [None]
  - HYPERSENSITIVITY [None]
  - HYPOTENSION [None]
  - OXYGEN SATURATION DECREASED [None]
  - PARAESTHESIA [None]
  - SKIN DISORDER [None]
  - URTICARIA [None]
  - WRONG TECHNIQUE IN DRUG USAGE PROCESS [None]
